FAERS Safety Report 9675649 (Version 2)
Quarter: 2014Q1

REPORT INFORMATION
  Report Type: Spontaneous
  Country: FR (occurrence: FR)
  Receive Date: 20131107
  Receipt Date: 20140110
  Transmission Date: 20141002
  Serious: Yes (Hospitalization, Other)
  Sender: FDA-Public Use
  Company Number: FR-ELI_LILLY_AND_COMPANY-FR201310008243

PATIENT
  Age: 83 Year
  Sex: Female

DRUGS (9)
  1. CYMBALTA [Suspect]
     Indication: MAJOR DEPRESSION
     Dosage: 1 DF, EACH MORNING
     Route: 048
  2. XANAX [Suspect]
     Indication: PRODUCT USED FOR UNKNOWN INDICATION
     Dosage: 0.25 MG, TID
     Route: 048
  3. TIAPRIDAL [Suspect]
     Indication: PRODUCT USED FOR UNKNOWN INDICATION
     Dosage: 75 MG, TID
     Route: 048
  4. IMOVANE [Suspect]
     Indication: INSOMNIA
     Dosage: 1 DF, EACH EVENING
     Route: 048
  5. EXELON /01383201/ [Suspect]
     Indication: DEMENTIA ALZHEIMER^S TYPE
     Dosage: 20 MG, BID
     Route: 048
     Dates: end: 20131017
  6. EBIXA [Suspect]
     Indication: DEMENTIA ALZHEIMER^S TYPE
     Dosage: 1 DF, EACH MORNING
     Route: 048
  7. VOLTARENE [Concomitant]
     Indication: PRODUCT USED FOR UNKNOWN INDICATION
     Dosage: 3 DF, QD
     Route: 065
  8. LEVOTHYROXINE [Concomitant]
     Indication: HYPOTHYROIDISM
     Dosage: 75 UG, QD
     Route: 065
  9. TRANSIPEG [Concomitant]
     Indication: CONSTIPATION
     Dosage: 2 DF, EACH MORNING
     Route: 065

REACTIONS (11)
  - Wound [Recovered/Resolved]
  - Spinal fracture [Recovered/Resolved]
  - Injury [Recovered/Resolved]
  - Pelvic fracture [Recovered/Resolved]
  - Clavicle fracture [Recovered/Resolved]
  - Blood creatinine decreased [Recovered/Resolved]
  - Presyncope [Recovered/Resolved]
  - Extrapyramidal disorder [Recovered/Resolved]
  - Fall [Recovering/Resolving]
  - Somnolence [Recovering/Resolving]
  - Vitamin D decreased [Recovered/Resolved]
